FAERS Safety Report 5800629-X (Version None)
Quarter: 2008Q3

REPORT INFORMATION
  Report Type: 
  Country: None (occurrence: None)
  Receive Date: 20080702
  Receipt Date: 20080702
  Transmission Date: 20090109
  Serious: Yes (Hospitalization)
  Sender: FDA-Public Use
  Company Number: None

PATIENT
  Sex: Female
  Weight: 58.9676 kg

DRUGS (11)
  1. BEXAROTENE [Suspect]
     Indication: NON-SMALL CELL LUNG CANCER STAGE IV
     Dosage: 525MG ONCE DAILY ORAL
     Route: 048
     Dates: start: 20030820
  2. OXYCODONE HCL [Concomitant]
  3. OXYCONTIN [Concomitant]
  4. SYNTHROID [Concomitant]
  5. FLEXERIL [Concomitant]
  6. LIPITOR [Concomitant]
  7. IBUPROFEN [Concomitant]
  8. LIPITOR [Concomitant]
  9. NEURONTIN [Concomitant]
  10. ZOLOFT [Concomitant]
  11. FOSAMAX [Concomitant]

REACTIONS (5)
  - CONFUSIONAL STATE [None]
  - NECK PAIN [None]
  - PNEUMONIA [None]
  - POLLAKIURIA [None]
  - URINARY HESITATION [None]
